FAERS Safety Report 19660242 (Version 1)
Quarter: 2021Q3

REPORT INFORMATION
  Report Type: Spontaneous
  Country: US (occurrence: US)
  Receive Date: 20210804
  Receipt Date: 20210804
  Transmission Date: 20211014
  Serious: Yes (Hospitalization)
  Sender: FDA-Public Use
  Company Number: None

PATIENT
  Age: 62 Year
  Sex: Male

DRUGS (18)
  1. ATORVASTATIN [Concomitant]
     Active Substance: ATORVASTATIN
  2. HYDROCO/APAP [Concomitant]
     Active Substance: ACETAMINOPHEN\HYDROCODONE
  3. RENA?VITE [Concomitant]
     Active Substance: ASCORBIC ACID\BIOTIN\CALCIUM PANTOTHENATE\CYANOCOBALAMIN\FOLIC ACID\NIACINAMIDE\PYRIDOXINE HYDROCHLORIDE\RIBOFLAVIN\THIAMINE MONONITRATE
  4. CLONIDINE. [Concomitant]
     Active Substance: CLONIDINE
  5. LACTULOSE. [Concomitant]
     Active Substance: LACTULOSE
  6. TORSEMIDE. [Concomitant]
     Active Substance: TORSEMIDE
  7. VITAMIN D [Concomitant]
     Active Substance: VITAMIN D NOS
  8. CALCITRIOL. [Concomitant]
     Active Substance: CALCITRIOL
  9. ESCITALOPRAM [Concomitant]
     Active Substance: ESCITALOPRAM OXALATE
  10. ONDANSETRON ODT [Concomitant]
     Active Substance: ONDANSETRON
  11. ESOMEPRAZOLE. [Concomitant]
     Active Substance: ESOMEPRAZOLE MAGNESIUM
  12. HYDRALAZINE [Concomitant]
     Active Substance: HYDRALAZINE HYDROCHLORIDE
  13. SODIUM BICAR [Concomitant]
  14. RETACRIT [Suspect]
     Active Substance: EPOETIN ALFA-EPBX
     Indication: PLASMA CELL MYELOMA
     Dosage: ROUTE: IF HGB {10 OR HCT {30
     Route: 058
     Dates: start: 20200509
  15. AMLODIPINE [Concomitant]
     Active Substance: AMLODIPINE BESYLATE
  16. CARVEDILOL. [Concomitant]
     Active Substance: CARVEDILOL
  17. FOLIC ACID. [Concomitant]
     Active Substance: FOLIC ACID
  18. ALLOPURINOL. [Concomitant]
     Active Substance: ALLOPURINOL

REACTIONS (1)
  - Dialysis [None]

NARRATIVE: CASE EVENT DATE: 20210720
